FAERS Safety Report 5746500-3 (Version None)
Quarter: 2008Q2

REPORT INFORMATION
  Report Type: 
  Country: None (occurrence: None)
  Receive Date: 20080522
  Receipt Date: 20080521
  Transmission Date: 20081010
  Serious: Yes (Other)
  Sender: FDA-Public Use
  Company Number: PHHY2008CN08337

PATIENT
  Sex: Female

DRUGS (1)
  1. MIACALCIN [Suspect]
     Dosage: 50 IU, ONCE/SINGLE

REACTIONS (2)
  - NAUSEA [None]
  - SYNCOPE [None]
